FAERS Safety Report 10734948 (Version 2)
Quarter: 2015Q1

REPORT INFORMATION
  Report Type: Report from Study
  Country: US (occurrence: US)
  Receive Date: 20150123
  Receipt Date: 20150219
  Transmission Date: 20150721
  Serious: Yes (Hospitalization, Other)
  Sender: FDA-Public Use
  Company Number: US-GILEAD-2015-0131252

PATIENT
  Age: 55 Year
  Sex: Male

DRUGS (2)
  1. LEDIPASVIR/SOFOSBUVIR [Suspect]
     Active Substance: LEDIPASVIR\SOFOSBUVIR
     Indication: CHRONIC HEPATITIS C
     Dosage: 1 DF, UNK
     Route: 048
     Dates: start: 20141219, end: 20150208
  2. PEPCID [Concomitant]
     Active Substance: FAMOTIDINE
     Indication: DYSPEPSIA
     Dosage: UNK
     Route: 048

REACTIONS (12)
  - Intracranial haematoma [Unknown]
  - Lymphoedema [Unknown]
  - Vomiting [Unknown]
  - Hypoaesthesia [Unknown]
  - Intracranial aneurysm [Unknown]
  - Pain of skin [Unknown]
  - Epistaxis [Unknown]
  - Insomnia [Unknown]
  - Headache [Unknown]
  - Hypertension [Recovered/Resolved]
  - Pyrexia [Unknown]
  - Nausea [Unknown]

NARRATIVE: CASE EVENT DATE: 20150110
